FAERS Safety Report 6012507-4 (Version None)
Quarter: 2008Q4

REPORT INFORMATION
  Report Type: 
  Country: None (occurrence: None)
  Receive Date: 20081218
  Receipt Date: 20081215
  Transmission Date: 20090506
  Serious: Yes (Hospitalization)
  Sender: FDA-Public Use
  Company Number: US-ROXANE LABORATORIES, INC.-2008-RO-00421RO

PATIENT
  Age: 30 Year
  Sex: Female

DRUGS (10)
  1. MYCOPHENOLATE MOFETIL [Suspect]
  2. PREDNISONE TAB [Suspect]
  3. FLUCONAZOLE [Suspect]
  4. CYCLOSPORINE [Suspect]
  5. INSULIN [Suspect]
  6. GANCICLOVIR [Suspect]
  7. TRIMETHOPRIM + SULFAMETHOXAZOLE [Suspect]
  8. ATENOLOL [Suspect]
  9. CLONIDINE [Suspect]
  10. DIGESTIVE ENZYME SUPPLEMENTS [Suspect]

REACTIONS (1)
  - BILE DUCT CANCER [None]
